FAERS Safety Report 9070450 (Version 3)
Quarter: 2014Q2

REPORT INFORMATION
  Report Type: Report from Study
  Country: NZ (occurrence: NZ)
  Receive Date: 20130215
  Receipt Date: 20140409
  Transmission Date: 20141212
  Serious: Yes (Death)
  Sender: FDA-Public Use
  Company Number: PHHY2013NZ014853

PATIENT
  Sex: Male

DRUGS (4)
  1. CLOZARIL [Suspect]
     Indication: SCHIZOPHRENIA
     Dosage: 750 MG, DAILY
     Route: 048
     Dates: start: 19990602
  2. CYPROTERONE [Concomitant]
     Dosage: 50 MG, BID
     Route: 048
     Dates: start: 20110817
  3. FLUOXETINE [Concomitant]
     Dosage: 60 MG, IN THE MORNING (MANE)
     Route: 048
     Dates: start: 20110817
  4. QUETIAPINE [Concomitant]
     Dosage: 100 UKN, TID
     Route: 048
     Dates: start: 20110817

REACTIONS (1)
  - Cardiac failure [Fatal]
